FAERS Safety Report 16598204 (Version 4)
Quarter: 2020Q3

REPORT INFORMATION
  Report Type: Spontaneous
  Country: US (occurrence: US)
  Receive Date: 20190719
  Receipt Date: 20200914
  Transmission Date: 20201102
  Serious: Yes (Other)
  Sender: FDA-Public Use
  Company Number: US-GILEAD-2019-0418496

PATIENT
  Age: 55 Year
  Sex: Male

DRUGS (1)
  1. TRUVADA [Suspect]
     Active Substance: EMTRICITABINE\TENOFOVIR DISOPROXIL FUMARATE
     Indication: HIV INFECTION
     Dosage: UNK
     Route: 048
     Dates: start: 2015, end: 2015

REACTIONS (14)
  - Acute kidney injury [Unknown]
  - Anxiety [Not Recovered/Not Resolved]
  - Bone density decreased [Not Recovered/Not Resolved]
  - Pain [Not Recovered/Not Resolved]
  - Rib fracture [Not Recovered/Not Resolved]
  - Vitamin D decreased [Unknown]
  - Osteosclerosis [Unknown]
  - Chronic kidney disease [Not Recovered/Not Resolved]
  - Economic problem [Not Recovered/Not Resolved]
  - Multiple fractures [Not Recovered/Not Resolved]
  - Renal failure [Not Recovered/Not Resolved]
  - Emotional distress [Not Recovered/Not Resolved]
  - Osteopenia [Not Recovered/Not Resolved]
  - Anhedonia [Not Recovered/Not Resolved]

NARRATIVE: CASE EVENT DATE: 201509
